FAERS Safety Report 18585121 (Version 1)
Quarter: 2020Q4

REPORT INFORMATION
  Report Type: Spontaneous
  Country: IT (occurrence: IT)
  Receive Date: 20201207
  Receipt Date: 20201207
  Transmission Date: 20210114
  Serious: Yes (Other)
  Sender: FDA-Public Use
  Company Number: IT-CHEPLA-C20203674

PATIENT
  Age: 10 Year
  Sex: Female

DRUGS (4)
  1. FOSCARNET [Suspect]
     Active Substance: FOSCARNET
     Indication: ENCEPHALITIS CYTOMEGALOVIRUS
     Dosage: 1800 MG/KG/DAY
  2. GANCICLOVIR. [Suspect]
     Active Substance: GANCICLOVIR
     Indication: ENCEPHALITIS CYTOMEGALOVIRUS
     Dosage: 10 MG/KG/DAY
  3. CYTOTECT CP, CMV HYPERIMMUNE GLOBULIN [Suspect]
     Active Substance: HUMAN CYTOMEGALOVIRUS IMMUNE GLOBULIN
     Indication: ENCEPHALITIS CYTOMEGALOVIRUS
     Dosage: 200 U/KG/ DOSE, FOR FIVE DAYS EVERY WEEK
     Route: 050
  4. VALGANCICLOVIR. [Suspect]
     Active Substance: VALGANCICLOVIR
     Indication: ENCEPHALITIS CYTOMEGALOVIRUS

REACTIONS (5)
  - Drug resistance [Unknown]
  - Renal impairment [Recovered/Resolved]
  - Neutropenia [Recovered/Resolved]
  - Product use issue [Unknown]
  - Thrombocytopenia [Recovered/Resolved]
